FAERS Safety Report 7968832-0 (Version None)
Quarter: 2011Q4

REPORT INFORMATION
  Report Type: 
  Country: None (occurrence: None)
  Receive Date: 20111122
  Receipt Date: 20110801
  Transmission Date: 20120403
  Serious: Yes (Other)
  Sender: FDA-Public Use
  Company Number: PHHY2011US66288

PATIENT
  Sex: Female

DRUGS (6)
  1. GILENYA [Suspect]
     Indication: MULTIPLE SCLEROSIS
     Dosage: 0.5 MG, DAILY, ORAL
     Route: 048
     Dates: start: 20110613
  2. CRESTOR [Concomitant]
  3. PROZAC [Concomitant]
  4. RITALIN [Concomitant]
  5. LORTAB [Concomitant]
  6. VESICARE [Concomitant]

REACTIONS (1)
  - HERPES ZOSTER [None]
